FAERS Safety Report 21272388 (Version 1)
Quarter: 2022Q3

REPORT INFORMATION
  Report Type: Spontaneous
  Country: US (occurrence: US)
  Receive Date: 20220830
  Receipt Date: 20220830
  Transmission Date: 20221027
  Serious: No
  Sender: FDA-Public Use
  Company Number: US-ABBVIE-22K-163-4242190-00

PATIENT
  Age: 59 Year
  Sex: Male
  Weight: 98.972 kg

DRUGS (1)
  1. MAVYRET [Suspect]
     Active Substance: GLECAPREVIR\PIBRENTASVIR
     Indication: Hepatitis C
     Dosage: 3 PILLS DAILY ONCE
     Route: 048
     Dates: start: 202110, end: 202112

REACTIONS (1)
  - Fear of disease [Unknown]

NARRATIVE: CASE EVENT DATE: 20211201
